FAERS Safety Report 18210886 (Version 1)
Quarter: 2020Q3

REPORT INFORMATION
  Report Type: Spontaneous
  Country: US (occurrence: US)
  Receive Date: 20200830
  Receipt Date: 20200830
  Transmission Date: 20201103
  Serious: No
  Sender: FDA-Public Use
  Company Number: US-ENDO PHARMACEUTICALS INC-2020-000052

PATIENT
  Sex: Female

DRUGS (3)
  1. THYROID THERAPY [Concomitant]
     Active Substance: UNSPECIFIED INGREDIENT
     Indication: THYROID DISORDER
  2. PREDNISONE. [Suspect]
     Active Substance: PREDNISONE
     Indication: RASH
     Dosage: UNK UNKNOWN, UNKNOWN
     Route: 065
     Dates: start: 20191109, end: 20191113
  3. ANTIHYPERTENSIVES [Concomitant]
     Active Substance: UNSPECIFIED INGREDIENT
     Indication: BLOOD PRESSURE MANAGEMENT

REACTIONS (1)
  - Drug ineffective [Not Recovered/Not Resolved]
